FAERS Safety Report 11413711 (Version 3)
Quarter: 2016Q1

REPORT INFORMATION
  Report Type: Spontaneous
  Country: AU (occurrence: AU)
  Receive Date: 20150824
  Receipt Date: 20160203
  Transmission Date: 20160525
  Serious: Yes (Death, Life-Threatening, Hospitalization, Other)
  Sender: FDA-Public Use
  Company Number: AU-PFIZER INC-2015277529

PATIENT
  Age: 36 Year
  Sex: Male

DRUGS (3)
  1. CHAMPIX [Suspect]
     Active Substance: VARENICLINE TARTRATE
     Dosage: 1 MG, 2X/DAY
     Route: 048
     Dates: start: 20150104
  2. DICLOFENAC [Suspect]
     Active Substance: DICLOFENAC
     Dosage: UNK
  3. MIDAZOLAM [Concomitant]
     Active Substance: MIDAZOLAM\MIDAZOLAM HYDROCHLORIDE
     Dosage: UNK

REACTIONS (13)
  - Social avoidant behaviour [Unknown]
  - Insomnia [Unknown]
  - Overdose [Fatal]
  - Hallucination [Unknown]
  - Suicide attempt [Fatal]
  - Mental status changes [Unknown]
  - Irritability [Unknown]
  - Pyrexia [Unknown]
  - Completed suicide [Fatal]
  - Brain injury [Fatal]
  - Anger [Unknown]
  - Pneumonia aspiration [Unknown]
  - Seizure [Unknown]

NARRATIVE: CASE EVENT DATE: 20150222
